FAERS Safety Report 11065767 (Version 3)
Quarter: 2015Q3

REPORT INFORMATION
  Report Type: Report from Study
  Country: US (occurrence: None)
  Receive Date: 20150423
  Receipt Date: 20150729
  Transmission Date: 20151125
  Serious: Yes (Death)
  Sender: FDA-Public Use
  Company Number: 2015TASUS000746

PATIENT
  Age: 17 Year
  Sex: Female

DRUGS (7)
  1. ATIVAN [Concomitant]
     Active Substance: LORAZEPAM
  2. SYNTHROID [Concomitant]
     Active Substance: LEVOTHYROXINE SODIUM
  3. AVASTIN [Concomitant]
     Active Substance: BEVACIZUMAB
  4. HETLIOZ [Suspect]
     Active Substance: TASIMELTEON
     Indication: CIRCADIAN RHYTHM SLEEP DISORDER
     Route: 048
     Dates: start: 20150202, end: 201504
  5. CEENU (LOMUSTINE) [Concomitant]
  6. PRAVASTATIN (PRAVASTATIN SODIUM) [Concomitant]
  7. HYDROCORTISONE. [Concomitant]
     Active Substance: HYDROCORTISONE

REACTIONS (3)
  - Malignant neoplasm progression [None]
  - Death [None]
  - Astrocytoma malignant [None]

NARRATIVE: CASE EVENT DATE: 201504
